FAERS Safety Report 23799914 (Version 1)
Quarter: 2024Q2

REPORT INFORMATION
  Report Type: Spontaneous
  Country: US (occurrence: None)
  Receive Date: 20240429
  Receipt Date: 20240429
  Transmission Date: 20240716
  Serious: Yes (unspecified)
  Sender: FDA-Public Use
  Company Number: None

PATIENT
  Age: 67 Year
  Sex: Male

DRUGS (1)
  1. GLEOSTINE [Suspect]
     Active Substance: LOMUSTINE
     Dosage: 200MG ONCE EVERY 42 DAYS

REACTIONS (6)
  - Nausea [None]
  - Fatigue [None]
  - Vomiting [None]
  - Platelet count decreased [None]
  - Rash papular [None]
  - Hemiparesis [None]
